FAERS Safety Report 23991007 (Version 1)
Quarter: 2024Q2

REPORT INFORMATION
  Report Type: Spontaneous
  Country: JP (occurrence: None)
  Receive Date: 20240619
  Receipt Date: 20240619
  Transmission Date: 20240715
  Serious: Yes (Other)
  Sender: FDA-Public Use
  Company Number: 2024A122878

PATIENT
  Age: 80 Year
  Sex: Male
  Weight: 72 kg

DRUGS (4)
  1. DAPAGLIFLOZIN [Suspect]
     Active Substance: DAPAGLIFLOZIN
     Indication: Cardiac failure chronic
     Route: 048
  2. SPIRONOLACTONE [Concomitant]
     Active Substance: SPIRONOLACTONE
     Dosage: NUMBER OF SEPARATE DOSAGES UNKNOWN
  3. AZOSEMIDE [Concomitant]
     Active Substance: AZOSEMIDE
     Dosage: NUMBER OF SEPARATE DOSAGES UNKNOWN
  4. ENALAPRIL [Concomitant]
     Active Substance: ENALAPRIL
     Dosage: DOSE UNKNOWN

REACTIONS (5)
  - Myocardial ischaemia [Unknown]
  - Hypertension [Unknown]
  - Diabetes mellitus [Unknown]
  - Dyslipidaemia [Unknown]
  - Cardiomyopathy [Unknown]
